FAERS Safety Report 17110138 (Version 1)
Quarter: 2019Q4

REPORT INFORMATION
  Report Type: Spontaneous
  Country: CN (occurrence: CN)
  Receive Date: 20191204
  Receipt Date: 20191204
  Transmission Date: 20200122
  Serious: Yes (Other)
  Sender: FDA-Public Use
  Company Number: CN-PFIZER INC-2019516322

PATIENT
  Age: 51 Year
  Sex: Female
  Weight: 52 kg

DRUGS (4)
  1. TRAMADOL HYDROCHLORIDE. [Suspect]
     Active Substance: TRAMADOL HYDROCHLORIDE
     Indication: MUSCULOSKELETAL PAIN
     Dosage: 50 MG, 1X/DAY
     Route: 048
     Dates: start: 20191113, end: 20191113
  2. CELEBREX [Suspect]
     Active Substance: CELECOXIB
     Indication: PERIARTHRITIS
     Dosage: 200 MG, 1X/DAY
     Route: 048
     Dates: start: 20191113, end: 20191114
  3. AESCUVEN FORTE [Suspect]
     Active Substance: HERBALS
     Indication: MUSCULOSKELETAL PAIN
     Dosage: 1 DF, 2X/DAY
     Route: 048
     Dates: start: 20191113, end: 20191114
  4. MIACALCIC [Concomitant]
     Active Substance: CALCITONIN SALMON
     Indication: PERIARTHRITIS
     Dosage: 50 IU, 1X/DAY
     Route: 030
     Dates: start: 20191113, end: 20191116

REACTIONS (3)
  - Vomiting [Recovering/Resolving]
  - Nausea [Recovering/Resolving]
  - Aspiration [Recovering/Resolving]

NARRATIVE: CASE EVENT DATE: 20191114
